FAERS Safety Report 8914260 (Version 2)
Quarter: 2012Q4

REPORT INFORMATION
  Report Type: Report from Study
  Country: CA (occurrence: CA)
  Receive Date: 20121119
  Receipt Date: 20121120
  Transmission Date: 20130627
  Serious: Yes (Other)
  Sender: FDA-Public Use
  Company Number: CA-JNJFOC-20121105641

PATIENT
  Sex: Female
  Weight: 76 kg

DRUGS (8)
  1. REMICADE [Suspect]
     Indication: CROHN^S DISEASE
     Route: 042
     Dates: start: 2000
  2. VITAMIN C [Concomitant]
     Route: 065
  3. LEVOTHYROXINE [Concomitant]
     Route: 065
  4. IMURAN [Concomitant]
     Route: 065
  5. FOLIC ACID [Concomitant]
     Route: 065
  6. VITAMIN B 12 [Concomitant]
     Route: 065
  7. PERCOCET [Concomitant]
     Route: 065
  8. ALL OTHER THERAPEUTICS [Concomitant]
     Route: 065

REACTIONS (3)
  - Iritis [Unknown]
  - Crohn^s disease [Not Recovered/Not Resolved]
  - Fistula [Not Recovered/Not Resolved]
